FAERS Safety Report 18061723 (Version 1)
Quarter: 2020Q3

REPORT INFORMATION
  Report Type: Spontaneous
  Country: US (occurrence: US)
  Receive Date: 20200723
  Receipt Date: 20200723
  Transmission Date: 20201103
  Serious: Yes (Other)
  Sender: FDA-Public Use
  Company Number: US-SAOL THERAPEUTICS-2020SAO00211

PATIENT
  Age: 51 Year
  Sex: Female
  Weight: 85.26 kg

DRUGS (2)
  1. LIORESAL [Suspect]
     Active Substance: BACLOFEN
     Dosage: 267 ?G\DAY
     Route: 037
  2. LIORESAL [Suspect]
     Active Substance: BACLOFEN
     Indication: MULTIPLE SCLEROSIS
     Dosage: 267.8 ?G\DAY
     Route: 037

REACTIONS (4)
  - Complication associated with device [Recovered/Resolved]
  - Withdrawal syndrome [Recovered/Resolved]
  - Device infusion issue [Recovered/Resolved]
  - Multiple sclerosis [Recovered/Resolved]

NARRATIVE: CASE EVENT DATE: 20200702
